FAERS Safety Report 6573399-8 (Version None)
Quarter: 2010Q1

REPORT INFORMATION
  Report Type: 
  Country: None (occurrence: None)
  Receive Date: 20100208
  Receipt Date: 20100128
  Transmission Date: 20100710
  Serious: Yes (Other)
  Sender: FDA-Public Use
  Company Number: US-PFIZER INC-2010012559

PATIENT
  Sex: Male

DRUGS (1)
  1. SUTENT [Suspect]
     Indication: RENAL CELL CARCINOMA
     Dosage: 50 MG, 1X/DAY
     Dates: start: 20091219

REACTIONS (19)
  - ANORECTAL DISCOMFORT [None]
  - ASTHENIA [None]
  - BACK PAIN [None]
  - BLOOD PRESSURE DECREASED [None]
  - CHILLS [None]
  - CONSTIPATION [None]
  - DIARRHOEA [None]
  - DYSGEUSIA [None]
  - EPISTAXIS [None]
  - FATIGUE [None]
  - HEADACHE [None]
  - INCREASED TENDENCY TO BRUISE [None]
  - INSOMNIA [None]
  - MEMORY IMPAIRMENT [None]
  - NAUSEA [None]
  - PAIN IN EXTREMITY [None]
  - PARALYSIS [None]
  - STOMATITIS [None]
  - VISUAL ACUITY REDUCED [None]
